FAERS Safety Report 25369345 (Version 1)
Quarter: 2025Q2

REPORT INFORMATION
  Report Type: Spontaneous
  Country: US (occurrence: None)
  Receive Date: 20250527
  Receipt Date: 20250527
  Transmission Date: 20250717
  Serious: Yes (Disabling)
  Sender: FDA-CTU
  Company Number: None

PATIENT
  Age: 71 Year
  Sex: Female
  Weight: 74.25 kg

DRUGS (8)
  1. CHLORHEXIDINE [Suspect]
     Active Substance: CHLORHEXIDINE
     Indication: Therapeutic skin care topical
     Route: 061
     Dates: start: 20250507, end: 20250507
  2. RECLAST [Suspect]
     Active Substance: ZOLEDRONIC ACID
  3. ROSUVASTATIN [Concomitant]
     Active Substance: ROSUVASTATIN
  4. TELMISARTAN [Concomitant]
     Active Substance: TELMISARTAN
  5. BUPROPION [Concomitant]
     Active Substance: BUPROPION
  6. COLCHICINE [Concomitant]
     Active Substance: COLCHICINE
  7. EZETIMIBE [Concomitant]
     Active Substance: EZETIMIBE
  8. ALLEGRA [Concomitant]
     Active Substance: FEXOFENADINE HYDROCHLORIDE

REACTIONS (8)
  - Documented hypersensitivity to administered product [None]
  - Influenza like illness [None]
  - Type IV hypersensitivity reaction [None]
  - Burning sensation [None]
  - Hyperaesthesia [None]
  - Drug intolerance [None]
  - Urticaria [None]
  - Pustule [None]

NARRATIVE: CASE EVENT DATE: 20250507
